FAERS Safety Report 5664413-2 (Version None)
Quarter: 2008Q1

REPORT INFORMATION
  Report Type: 
  Country: None (occurrence: None)
  Receive Date: 20080314
  Receipt Date: 20080229
  Transmission Date: 20080703
  Serious: Yes (Hospitalization)
  Sender: FDA-Public Use
  Company Number: TR-AMGEN-US213687

PATIENT
  Age: 66 Year
  Sex: Male

DRUGS (5)
  1. ENBREL [Suspect]
     Indication: RHEUMATOID ARTHRITIS
     Dosage: 25 MG; 1-2 TIMES A WEEK
     Route: 058
     Dates: start: 20050501, end: 20051101
  2. ISOVIT [Concomitant]
     Indication: ANTIBIOTIC PROPHYLAXIS
     Route: 065
     Dates: start: 20050601
  3. BRUFEN [Concomitant]
     Indication: RHEUMATOID ARTHRITIS
     Route: 065
     Dates: start: 19941201
  4. ARAVA [Concomitant]
     Indication: RHEUMATOID ARTHRITIS
     Route: 048
     Dates: start: 20021201
  5. DELTACORTRIL [Concomitant]
     Indication: RHEUMATOID ARTHRITIS
     Dosage: 5-10 MG; ONCE DAILY
     Route: 065
     Dates: start: 19941201

REACTIONS (1)
  - RECTAL CANCER [None]
